FAERS Safety Report 5383940-9 (Version None)
Quarter: 2007Q3

REPORT INFORMATION
  Report Type: 
  Country: None (occurrence: None)
  Receive Date: 20070711
  Receipt Date: 20070628
  Transmission Date: 20080115
  Serious: Yes (Other)
  Sender: FDA-Public Use
  Company Number: US-PFIZER INC-2007052363

PATIENT
  Sex: Female
  Weight: 72.6 kg

DRUGS (5)
  1. LYRICA [Suspect]
     Indication: NEURALGIA
  2. TOPROL-XL [Concomitant]
  3. ASPIRIN [Concomitant]
  4. PREDNISONE [Concomitant]
  5. FOSAMAX [Concomitant]

REACTIONS (5)
  - BLOOD CHOLESTEROL INCREASED [None]
  - FATIGUE [None]
  - IMPAIRED DRIVING ABILITY [None]
  - PHOTOPHOBIA [None]
  - VISUAL DISTURBANCE [None]
